FAERS Safety Report 9623101 (Version 1)
Quarter: 2013Q4

REPORT INFORMATION
  Report Type: Spontaneous
  Country: US (occurrence: None)
  Receive Date: 20131010
  Receipt Date: 20131010
  Transmission Date: 20140711
  Serious: Yes (Hospitalization, Other)
  Sender: FDA-Public Use
  Company Number: 2013-000987

PATIENT
  Age: 59 Year
  Sex: Female
  Weight: 66 kg

DRUGS (14)
  1. ACTONEL (RISEDRONATE SODIUM) TABLET, 150 MG [Suspect]
     Route: 048
     Dates: start: 200907, end: 200912
  2. ACTONEL (RISEDRONATE SODIUM) TABLET, 35 MG [Suspect]
     Route: 048
     Dates: start: 200410, end: 200411
  3. PREDNISONE (PREDNISONE) [Concomitant]
  4. HYDROXYCHLOROQUINE (HYDROXYCHLOROQUINE) [Concomitant]
  5. NADOLOL (NADOLOL) [Concomitant]
  6. GABAPENTIN (GABAPENTIN) [Concomitant]
  7. TRAZODONE (TRAZODONE) [Concomitant]
  8. ALPRAZOLAM (ALPRAZOLAM) [Concomitant]
  9. LUNESTA (ESZOPICLONE) [Concomitant]
  10. CYMBALTA (DULOXETINE HYDROCHLORIDE) [Concomitant]
  11. CYCLOBENZAPRINE (CYCLOBENZAPRINE) [Concomitant]
  12. BUTALBITAL/APAP (BUTALBITAL, PARACETAMOL) [Concomitant]
  13. OXYCODONE /APAP (OXYCODONE, PARACETAMOL) [Concomitant]
  14. FERROUS SULFATE (FERROUS SULFATE) [Concomitant]

REACTIONS (5)
  - Femur fracture [None]
  - Comminuted fracture [None]
  - Fracture displacement [None]
  - Pain in extremity [None]
  - Fall [None]
